FAERS Safety Report 7529575-0 (Version None)
Quarter: 2011Q2

REPORT INFORMATION
  Report Type: 
  Country: None (occurrence: None)
  Receive Date: 20110607
  Receipt Date: 20110525
  Transmission Date: 20111010
  Serious: Yes (Life-Threatening, Hospitalization)
  Sender: FDA-Public Use
  Company Number: SK-TEVA-283877ISR

PATIENT
  Sex: Female

DRUGS (1)
  1. TEMOZOLOMIDE [Suspect]
     Route: 048
     Dates: start: 20110427, end: 20110513

REACTIONS (4)
  - LUNG INFILTRATION [None]
  - WHITE BLOOD CELL COUNT DECREASED [None]
  - BRAIN NEOPLASM MALIGNANT [None]
  - SKIN REACTION [None]
